FAERS Safety Report 19827077 (Version 1)
Quarter: 2021Q3

REPORT INFORMATION
  Report Type: Spontaneous
  Country: US (occurrence: US)
  Receive Date: 20210914
  Receipt Date: 20210914
  Transmission Date: 20211014
  Serious: No
  Sender: FDA-Public Use
  Company Number: None

PATIENT
  Age: 46 Year
  Sex: Female
  Weight: 49.5 kg

DRUGS (1)
  1. SUTAB [Suspect]
     Active Substance: MAGNESIUM SULFATE\POTASSIUM CHLORIDE\SODIUM SULFATE
     Indication: COLONOSCOPY
     Dosage: ?          QUANTITY:24 TABLET(S);?
     Route: 048
     Dates: start: 20210913, end: 20210914

REACTIONS (3)
  - Pruritus [None]
  - Rash [None]
  - Lip pruritus [None]

NARRATIVE: CASE EVENT DATE: 20210913
